FAERS Safety Report 10987122 (Version 1)
Quarter: 2015Q1

REPORT INFORMATION
  Report Type: Spontaneous
  Country: US (occurrence: None)
  Receive Date: 20150324
  Receipt Date: 20150324
  Transmission Date: 20150721
  Serious: Yes (Other)
  Sender: FDA-Public Use
  Company Number: 1000069390

PATIENT
  Age: 19 Year
  Sex: Female

DRUGS (2)
  1. VIIBRYD [Suspect]
     Active Substance: VILAZODONE HYDROCHLORIDE
     Indication: DEPRESSION
     Route: 048
     Dates: start: 20140517, end: 20140523
  2. VIIBRYD [Suspect]
     Active Substance: VILAZODONE HYDROCHLORIDE
     Indication: DEPRESSION
     Route: 048
     Dates: start: 20140531, end: 20140613

REACTIONS (5)
  - Poor quality sleep [None]
  - Suicidal ideation [None]
  - Tachyphrenia [None]
  - Social avoidant behaviour [None]
  - Anger [None]

NARRATIVE: CASE EVENT DATE: 2014
